FAERS Safety Report 21570929 (Version 3)
Quarter: 2023Q1

REPORT INFORMATION
  Report Type: Spontaneous
  Country: CN (occurrence: CN)
  Receive Date: 20221109
  Receipt Date: 20230316
  Transmission Date: 20230417
  Serious: Yes (Hospitalization)
  Sender: FDA-Public Use
  Company Number: CN-002147023-NVSC2022CN249223

PATIENT
  Age: 67 Year
  Sex: Male
  Weight: 67 kg

DRUGS (1)
  1. TEGRETOL [Suspect]
     Active Substance: CARBAMAZEPINE
     Indication: Trigeminal neuralgia
     Dosage: 0.4 G, TID
     Route: 048
     Dates: start: 20171001, end: 20221017

REACTIONS (6)
  - Vertigo [Recovering/Resolving]
  - Cerebral infarction [Recovering/Resolving]
  - Diplopia [Recovering/Resolving]
  - Ataxia [Recovering/Resolving]
  - Hallucination [Recovering/Resolving]
  - Drug level decreased [Unknown]

NARRATIVE: CASE EVENT DATE: 20221014
